FAERS Safety Report 17479547 (Version 1)
Quarter: 2020Q1

REPORT INFORMATION
  Report Type: Report from Study
  Country: US (occurrence: US)
  Receive Date: 20200228
  Receipt Date: 20200228
  Transmission Date: 20200409
  Serious: Yes (Hospitalization)
  Sender: FDA-Public Use
  Company Number: US-GILEAD-2020-0452951

PATIENT
  Age: 50 Year
  Sex: Female

DRUGS (43)
  1. AJOVY [Concomitant]
     Active Substance: FREMANEZUMAB-VFRM
  2. PREDNISONE. [Concomitant]
     Active Substance: PREDNISONE
  3. BUDESONIDE. [Concomitant]
     Active Substance: BUDESONIDE
  4. CREON [Concomitant]
     Active Substance: PANCRELIPASE AMYLASE\PANCRELIPASE LIPASE\PANCRELIPASE PROTEASE
  5. CYCLOBENZAPRINE. [Concomitant]
     Active Substance: CYCLOBENZAPRINE
  6. OXYCODONE [Concomitant]
     Active Substance: OXYCODONE
  7. RIBOFLAVIN [Concomitant]
     Active Substance: RIBOFLAVIN
  8. DUREZOL [Concomitant]
     Active Substance: DIFLUPREDNATE
  9. ELIQUIS [Concomitant]
     Active Substance: APIXABAN
  10. MELATONIN [Concomitant]
     Active Substance: MELATONIN
  11. PREGABALIN. [Concomitant]
     Active Substance: PREGABALIN
  12. STERILIZED WATER FOR INJECTIONS [Concomitant]
  13. URSODIOL. [Concomitant]
     Active Substance: URSODIOL
  14. DOK [Concomitant]
     Active Substance: DOCUSATE SODIUM
  15. FLUTICASONE. [Concomitant]
     Active Substance: FLUTICASONE
  16. LORATADINE. [Concomitant]
     Active Substance: LORATADINE
  17. MAGNESIUM OXIDE. [Concomitant]
     Active Substance: MAGNESIUM OXIDE
  18. OYSTER SHELL [Concomitant]
     Active Substance: OSTREA EDULIS SHELL
  19. PROLENSA [Concomitant]
     Active Substance: BROMFENAC SODIUM
  20. PULMOZYME [Concomitant]
     Active Substance: DORNASE ALFA
  21. SMZ-TMP [Concomitant]
     Active Substance: SULFAMETHOXAZOLE\TRIMETHOPRIM
  22. AZTREONAM LYSINE [Suspect]
     Active Substance: AZTREONAM LYSINE
     Indication: CYSTIC FIBROSIS LUNG
     Dosage: 75 MG, TID, QOM
     Route: 055
     Dates: start: 20150805
  23. AZITHROMYCIN ANHYDROUS. [Concomitant]
     Active Substance: AZITHROMYCIN ANHYDROUS
  24. BUTALBITAL APAP CAFFEINE [Concomitant]
     Active Substance: ACETAMINOPHEN\BUTALBITAL\CAFFEINE
  25. COLISTIMETHATE [COLISTIMETHATE SODIUM] [Concomitant]
     Active Substance: COLISTIMETHATE SODIUM
  26. TRAZODONE [Concomitant]
     Active Substance: TRAZODONE HYDROCHLORIDE
  27. TRIKAFTA [Concomitant]
     Active Substance: ELEXACAFTOR\IVACAFTOR\TEZACAFTOR
  28. ATROVENT [Concomitant]
     Active Substance: IPRATROPIUM BROMIDE
  29. DOXYCYCLINE. [Concomitant]
     Active Substance: DOXYCYCLINE
  30. VITAMINS NOS [Concomitant]
     Active Substance: VITAMINS
  31. PEG 3350 [Concomitant]
     Active Substance: POLYETHYLENE GLYCOL 3350
  32. PULMICORT TURBUHALER [Concomitant]
     Active Substance: BUDESONIDE
  33. RANITIDINE. [Concomitant]
     Active Substance: RANITIDINE
  34. OMEPRAZOLE. [Concomitant]
     Active Substance: OMEPRAZOLE
  35. ONDANSETRON [Concomitant]
     Active Substance: ONDANSETRON
  36. VENTOLIN [Concomitant]
     Active Substance: ALBUTEROL SULFATE
  37. VITAMIN D3 [Concomitant]
     Active Substance: CHOLECALCIFEROL
  38. ZINC GLUCON [Concomitant]
  39. FAMOTIDINE. [Concomitant]
     Active Substance: FAMOTIDINE
  40. OFLOXACIN. [Concomitant]
     Active Substance: OFLOXACIN
  41. ONE TOUCH [Concomitant]
     Active Substance: DEXTROSE
  42. POLY-IRON [FERROUS GLUCONATE] [Concomitant]
  43. VITAMIN A [RETINOL] [Concomitant]
     Active Substance: RETINOL

REACTIONS (1)
  - Lung disorder [Unknown]

NARRATIVE: CASE EVENT DATE: 202002
